FAERS Safety Report 12701676 (Version 2)
Quarter: 2016Q4

REPORT INFORMATION
  Report Type: Spontaneous
  Country: US (occurrence: US)
  Receive Date: 20160831
  Receipt Date: 20161025
  Transmission Date: 20170207
  Serious: Yes (Hospitalization, Other)
  Sender: FDA-Public Use
  Company Number: US-DRREDDYS-USA/USA/16/0082738

PATIENT
  Age: 73 Year
  Sex: Female

DRUGS (5)
  1. RISPERIDONE TABLETS 4 MG [Interacting]
     Active Substance: RISPERIDONE
     Indication: AGITATION
     Route: 065
  2. RISPERIDONE TABLETS 4 MG [Interacting]
     Active Substance: RISPERIDONE
     Indication: PARANOIA
  3. OLANZAPINE FILM-COATED TABLET [Suspect]
     Active Substance: OLANZAPINE
     Indication: CONFUSIONAL STATE
     Route: 065
  4. NICOTINE. [Interacting]
     Active Substance: NICOTINE
     Indication: PRODUCT USED FOR UNKNOWN INDICATION
     Route: 065
  5. RISPERIDONE TABLETS 4 MG [Interacting]
     Active Substance: RISPERIDONE
     Indication: DEMENTIA

REACTIONS (7)
  - Confusional state [Recovered/Resolved]
  - Tremor [Recovered/Resolved]
  - Drug interaction [Unknown]
  - Toxicity to various agents [Recovered/Resolved]
  - Antipsychotic drug level decreased [Recovered/Resolved]
  - Mental status changes [Recovered/Resolved]
  - Hallucination [Recovered/Resolved]
